FAERS Safety Report 9826248 (Version 1)
Quarter: 2013Q4

REPORT INFORMATION
  Report Type: Spontaneous
  Country: US (occurrence: None)
  Receive Date: 20131223
  Receipt Date: 20131223
  Transmission Date: 20140711
  Serious: Yes (Other)
  Sender: FDA-Public Use
  Company Number: 219855LEO

PATIENT
  Age: 56 Year
  Sex: Female

DRUGS (5)
  1. PICATO [Suspect]
     Indication: ACTINIC KERATOSIS
     Dosage: TOPICAL
     Route: 061
     Dates: start: 20121128, end: 20121129
  2. DIOVAN HCT (CO-DIOVAN) [Concomitant]
  3. VITAMIN D (VITAMIN D NOS) [Concomitant]
  4. ASA (ACETYLSALICYLIC ACID) [Concomitant]
  5. PROTONIX (PANTOPRAZOLE) [Concomitant]

REACTIONS (7)
  - Urticaria [None]
  - Application site vesicles [None]
  - Application site pain [None]
  - Application site exfoliation [None]
  - Application site scab [None]
  - Application site erythema [None]
  - Drug administered at inappropriate site [None]
